FAERS Safety Report 9846513 (Version 1)
Quarter: 2014Q1

REPORT INFORMATION
  Report Type: Spontaneous
  Country: GB (occurrence: None)
  Receive Date: 20140117
  Receipt Date: 20140117
  Transmission Date: 20141002
  Serious: Yes (Other)
  Sender: FDA-Public Use
  Company Number: AUR-APL-2014-00337

PATIENT
  Age: 37 Year
  Sex: Female
  Weight: 55.33 kg

DRUGS (1)
  1. FLUOXETINE [Suspect]
     Indication: DEPRESSION
     Dates: start: 201310

REACTIONS (3)
  - Syncope [None]
  - Alcohol use [None]
  - Drug interaction [None]
